FAERS Safety Report 5354383-9 (Version None)
Quarter: 2007Q2

REPORT INFORMATION
  Report Type: 
  Country: None (occurrence: None)
  Receive Date: 20070612
  Receipt Date: 20070604
  Transmission Date: 20071010
  Serious: Yes (Other)
  Sender: FDA-Public Use
  Company Number: US-JNJFOC-20070601107

PATIENT
  Sex: Male
  Weight: 95.26 kg

DRUGS (8)
  1. DURAGESIC-100 [Suspect]
     Indication: NEUROPATHY PERIPHERAL
     Route: 062
  2. DURAGESIC-100 [Suspect]
     Indication: PAIN
     Route: 062
  3. FENTANYL TRANSDERMAL SYSTEM [Suspect]
     Indication: PAIN
     Route: 062
  4. ACIPHEX [Concomitant]
     Indication: GASTROOESOPHAGEAL REFLUX DISEASE
     Route: 048
  5. CELEBREX [Concomitant]
     Indication: INFLAMMATION
     Route: 048
  6. LYRICA [Concomitant]
     Indication: NEURALGIA
     Route: 048
  7. HYDROCODONE BITARTRATE [Concomitant]
     Indication: PAIN
     Dosage: 10/500
     Route: 048
  8. PERCOCET [Concomitant]
     Indication: PAIN
     Dosage: 5/325MG
     Route: 048

REACTIONS (5)
  - BLOOD CHOLESTEROL INCREASED [None]
  - DEPRESSION [None]
  - INCORRECT DRUG ADMINISTRATION DURATION [None]
  - MUSCLE TWITCHING [None]
  - THYROID FUNCTION TEST ABNORMAL [None]
